FAERS Safety Report 15171356 (Version 1)
Quarter: 2018Q3

REPORT INFORMATION
  Report Type: Spontaneous
  Country: US (occurrence: US)
  Receive Date: 20180622
  Receipt Date: 20180622
  Transmission Date: 20181010
  Serious: Yes (Death)
  Sender: FDA-Public Use
  Company Number: None

PATIENT
  Age: 59 Year
  Sex: Female

DRUGS (7)
  1. POLYETHYLENE GLYCOL [Concomitant]
     Active Substance: POLYETHYLENE GLYCOLS
  2. XARELTO [Concomitant]
     Active Substance: RIVAROXABAN
  3. MORPHINE [Concomitant]
     Active Substance: MORPHINE
  4. KCL [Concomitant]
     Active Substance: POTASSIUM CHLORIDE
  5. TAGRISSO [Concomitant]
     Active Substance: OSIMERTINIB
  6. PREDNISONE. [Concomitant]
     Active Substance: PREDNISONE
  7. TARCEVA [Suspect]
     Active Substance: ERLOTINIB HYDROCHLORIDE
     Indication: LUNG NEOPLASM MALIGNANT
     Route: 048
     Dates: start: 20180524, end: 20180615

REACTIONS (1)
  - Death [None]

NARRATIVE: CASE EVENT DATE: 20180615
